FAERS Safety Report 12864853 (Version 1)
Quarter: 2016Q4

REPORT INFORMATION
  Report Type: Spontaneous
  Country: JP (occurrence: JP)
  Receive Date: 20161020
  Receipt Date: 20161020
  Transmission Date: 20170207
  Serious: Yes (Disabling, Other)
  Sender: FDA-Public Use
  Company Number: JP-NODEN PHARMA DAC-NOD-2016-000018

PATIENT
  Age: 72 Year
  Sex: Female
  Weight: 60 kg

DRUGS (6)
  1. CARVEDILOL. [Concomitant]
     Active Substance: CARVEDILOL
     Indication: RENOVASCULAR HYPERTENSION
     Dosage: UNK
     Route: 065
  2. NIFEDIPINE. [Concomitant]
     Active Substance: NIFEDIPINE
     Indication: RENOVASCULAR HYPERTENSION
     Dosage: UNK
     Route: 065
  3. TRICHLORMETHIAZIDE [Concomitant]
     Active Substance: TRICHLORMETHIAZIDE
     Indication: RENOVASCULAR HYPERTENSION
     Dosage: UNK
     Route: 065
  4. RASILEZ [Suspect]
     Active Substance: ALISKIREN
     Indication: RENOVASCULAR HYPERTENSION
     Dosage: 150 MG, QD
     Route: 048
     Dates: start: 200910, end: 201001
  5. RASILEZ [Suspect]
     Active Substance: ALISKIREN
     Indication: RENAL ARTERY STENOSIS
     Dosage: 300 MG, QD
     Route: 048
     Dates: start: 201001, end: 201002
  6. OLMESARTAN [Concomitant]
     Active Substance: OLMESARTAN
     Indication: RENOVASCULAR HYPERTENSION
     Dosage: UNK
     Route: 065

REACTIONS (2)
  - Renal impairment [Not Recovered/Not Resolved]
  - Blood pressure inadequately controlled [Recovered/Resolved]

NARRATIVE: CASE EVENT DATE: 201010
